FAERS Safety Report 4777389-7 (Version None)
Quarter: 2005Q3

REPORT INFORMATION
  Report Type: 
  Country: None (occurrence: None)
  Receive Date: 20050915
  Receipt Date: 20050908
  Transmission Date: 20060218
  Serious: Yes (Hospitalization, Other)
  Sender: FDA-Public Use
  Company Number: 2005125399

PATIENT
  Age: 75 Year
  Sex: Male
  Weight: 70.3075 kg

DRUGS (5)
  1. LIPITOR [Suspect]
     Indication: BLOOD CHOLESTEROL INCREASED
     Dosage: 10 MG, 20 MG OR 40 MG
  2. TOPROL (METOPROLOL) [Concomitant]
  3. HYDROCHLOROTHIAZIDE [Concomitant]
  4. ALTACE [Concomitant]
  5. ZETIA [Concomitant]

REACTIONS (6)
  - HYALOSIS ASTEROID [None]
  - MUSCLE FATIGUE [None]
  - MYALGIA [None]
  - PROSTATIC DISORDER [None]
  - VASCULAR BYPASS GRAFT [None]
  - VITREOUS FLOATERS [None]
